FAERS Safety Report 4306798-5 (Version None)
Quarter: 2004Q1

REPORT INFORMATION
  Report Type: 
  Country: None (occurrence: None)
  Receive Date: 20040225
  Receipt Date: 20040213
  Transmission Date: 20041129
  Serious: Yes (Hospitalization, Other)
  Sender: FDA-Public Use
  Company Number: NSADSS2001003217

PATIENT
  Age: 52 Year
  Sex: Female
  Weight: 65 kg

DRUGS (9)
  1. REMICADE [Suspect]
     Indication: POLYARTHRITIS
     Dosage: 195 MG, 1 IN 1 AS NECESSARY; INTRAVENOUS DRIP (SEE IMAGE)
     Route: 041
     Dates: start: 19991216, end: 19991216
  2. REMICADE [Suspect]
     Indication: POLYARTHRITIS
     Dosage: 195 MG, 1 IN 1 AS NECESSARY; INTRAVENOUS DRIP (SEE IMAGE)
     Route: 041
     Dates: start: 20000201, end: 20000201
  3. REMICADE [Suspect]
     Indication: POLYARTHRITIS
     Dosage: 195 MG, 1 IN 1 AS NECESSARY; INTRAVENOUS DRIP (SEE IMAGE)
     Route: 041
     Dates: start: 20000401, end: 20000401
  4. REMICADE [Suspect]
     Indication: POLYARTHRITIS
     Dosage: 195 MG, 1 IN 1 AS NECESSARY; INTRAVENOUS DRIP (SEE IMAGE)
     Route: 041
     Dates: start: 20000704, end: 20000704
  5. METHOTREXATE [Suspect]
     Indication: POLYARTHRITIS
     Dosage: 15 MG, 1 IN 1 WEEK; ORAL
     Route: 048
     Dates: start: 19910501
  6. FOLSAN (FOLIC ACID) TABLETS [Concomitant]
  7. MISOPROSTOL [Concomitant]
  8. EUTHROX (LEVOTHYROXINE SODIUM) [Concomitant]
  9. PREDNISOLONE [Concomitant]

REACTIONS (13)
  - BONE MARROW TOXICITY [None]
  - CIRCULATORY COLLAPSE [None]
  - HEPATOCELLULAR DAMAGE [None]
  - HEPATOTOXICITY [None]
  - HYPERSENSITIVITY [None]
  - INJURY [None]
  - LACERATION [None]
  - LEUKOPENIA [None]
  - PSYCHOTIC DISORDER [None]
  - PYELONEPHRITIS [None]
  - SUICIDAL IDEATION [None]
  - THROMBOCYTOPENIA [None]
  - VERTIGO POSITIONAL [None]
